FAERS Safety Report 8457551-2 (Version None)
Quarter: 2012Q2

REPORT INFORMATION
  Report Type: 
  Country: None (occurrence: None)
  Receive Date: 20120622
  Receipt Date: 20120614
  Transmission Date: 20120825
  Serious: Yes (Hospitalization)
  Sender: FDA-Public Use
  Company Number: US-BIOGENIDEC-2012BI021526

PATIENT
  Age: 45 Year
  Sex: Female

DRUGS (2)
  1. TYSABRI [Suspect]
     Indication: MULTIPLE SCLEROSIS
     Route: 042
     Dates: start: 20101018, end: 20101220
  2. PAIN MEDICATION (NOS) [Concomitant]
     Indication: PAIN

REACTIONS (3)
  - DELIRIUM [None]
  - OVERDOSE [None]
  - HEPATIC ENZYME INCREASED [None]
